FAERS Safety Report 20229151 (Version 1)
Quarter: 2021Q4

REPORT INFORMATION
  Report Type: Spontaneous
  Country: DE (occurrence: DE)
  Receive Date: 20211225
  Receipt Date: 20211225
  Transmission Date: 20220303
  Serious: Yes (Death)
  Sender: FDA-Public Use
  Company Number: DE-ALKEM LABORATORIES LIMITED-DE-ALKEM-2021-01892

PATIENT
  Age: 51 Year
  Sex: Male

DRUGS (8)
  1. MYCOPHENOLATE MOFETIL [Suspect]
     Active Substance: MYCOPHENOLATE MOFETIL
     Indication: Prophylaxis against graft versus host disease
     Dosage: 720 MILLIGRAM, BID
     Route: 048
  2. EVEROLIMUS [Suspect]
     Active Substance: EVEROLIMUS
     Indication: Prophylaxis against graft versus host disease
     Dosage: 1.5 MILLIGRAM, BID
     Route: 048
  3. FLUDARABINE [Suspect]
     Active Substance: FLUDARABINE PHOSPHATE
     Indication: Myelodysplastic syndrome
     Dosage: UNK
     Route: 065
  4. FLUDARABINE [Suspect]
     Active Substance: FLUDARABINE PHOSPHATE
     Indication: Refractory anaemia with an excess of blasts
  5. BICNU [Suspect]
     Active Substance: CARMUSTINE
     Indication: Myelodysplastic syndrome
     Dosage: UNK
     Route: 065
  6. BICNU [Suspect]
     Active Substance: CARMUSTINE
     Indication: Refractory anaemia with an excess of blasts
  7. MELPHALAN [Suspect]
     Active Substance: MELPHALAN
     Indication: Myelodysplastic syndrome
     Dosage: UNK
     Route: 065
  8. MELPHALAN [Suspect]
     Active Substance: MELPHALAN
     Indication: Refractory anaemia with an excess of blasts

REACTIONS (1)
  - Drug ineffective [Fatal]
